FAERS Safety Report 8906935 (Version 1)
Quarter: 2012Q4

REPORT INFORMATION
  Report Type: 
  Country: FR (occurrence: FR)
  Receive Date: 20121114
  Receipt Date: 20121114
  Transmission Date: 20130627
  Serious: Yes (Hospitalization, Other)
  Sender: FDA-Public Use
  Company Number: FR-ASTRAZENECA-2012SE85205

PATIENT
  Sex: Female

DRUGS (16)
  1. INEXIUM [Suspect]
     Route: 048
     Dates: end: 20120903
  2. RISPERDAL [Suspect]
     Route: 048
     Dates: end: 20120903
  3. RISPERDAL [Suspect]
     Dosage: reduced dose
     Route: 048
  4. RISPERDAL [Suspect]
     Route: 048
  5. RISPERDAL [Suspect]
     Dosage: reduced dose
     Route: 048
  6. TRILEPTAL [Suspect]
     Route: 048
     Dates: end: 20120903
  7. RASILEZ HYDROCHLOROTHIAZIDE [Suspect]
     Dosage: 300/25 MG Daily
     Route: 048
     Dates: end: 20120903
  8. HYPERIUM [Suspect]
     Route: 048
     Dates: end: 20120903
  9. TERCIAN [Suspect]
     Route: 048
     Dates: end: 20120903
  10. TERCIAN [Suspect]
     Route: 048
  11. CRESTOR [Concomitant]
     Route: 048
  12. STILNOX [Concomitant]
     Route: 048
  13. ZANIDIP [Concomitant]
     Route: 048
  14. TEMERIT [Concomitant]
     Route: 048
  15. DESLORATADINE [Concomitant]
     Route: 048
  16. ARTANE [Concomitant]
     Route: 048

REACTIONS (6)
  - Bradycardia [Unknown]
  - Parkinsonism [Recovered/Resolved]
  - Abnormal behaviour [Unknown]
  - Hypokalaemia [Recovered/Resolved]
  - Hyponatraemia [Recovered/Resolved]
  - Confusional state [Recovered/Resolved]
